FAERS Safety Report 8975125 (Version 1)
Quarter: 2012Q4

REPORT INFORMATION
  Report Type: 
  Country: US (occurrence: US)
  Receive Date: 20121219
  Receipt Date: 20121219
  Transmission Date: 20130627
  Serious: No
  Sender: FDA-Public Use
  Company Number: US-AMGEN-USASP2012072077

PATIENT
  Age: 66 Year
  Sex: Female
  Weight: 52.15 kg

DRUGS (7)
  1. PROLIA [Suspect]
     Indication: OSTEOPOROSIS
     Dosage: 60 mg, q6mo
     Dates: start: 20121106
  2. CALCIUM [Concomitant]
     Indication: BLOOD CALCIUM DECREASED
     Dosage: UNK
     Dates: start: 201211
  3. ARMOUR THYROID [Concomitant]
     Indication: HYPOTHYROIDISM
     Dosage: 30 mg, qd
     Route: 048
  4. FLEXERIL [Concomitant]
     Dosage: 10 mg, qd
     Route: 048
  5. PREVACID [Concomitant]
     Indication: GASTROOESOPHAGEAL REFLUX DISEASE
     Dosage: 30 mg, qd
     Route: 048
  6. DEPAKOTE [Concomitant]
     Dosage: UNK
     Route: 048
  7. SINGULAIR [Concomitant]
     Indication: ASTHMA
     Dosage: UNK
     Route: 048

REACTIONS (2)
  - Pain [Recovered/Resolved]
  - Arthralgia [Recovered/Resolved]
